FAERS Safety Report 5118602-6 (Version None)
Quarter: 2006Q4

REPORT INFORMATION
  Report Type: 
  Country: None (occurrence: None)
  Receive Date: 20061002
  Receipt Date: 20060914
  Transmission Date: 20070319
  Serious: Yes (Other)
  Sender: FDA-Public Use
  Company Number: US-GLAXOSMITHKLINE-A0620208A

PATIENT
  Age: 34 Year
  Sex: Female

DRUGS (1)
  1. IMITREX [Suspect]
     Indication: MIGRAINE
     Dosage: 25MG SINGLE DOSE
     Route: 048
     Dates: start: 20060908, end: 20060908

REACTIONS (7)
  - DIZZINESS [None]
  - DRUG INEFFECTIVE [None]
  - HEAD DISCOMFORT [None]
  - LOSS OF CONSCIOUSNESS [None]
  - MIGRAINE [None]
  - PYREXIA [None]
  - SOMNOLENCE [None]
